FAERS Safety Report 8029129-6 (Version None)
Quarter: 2012Q1

REPORT INFORMATION
  Report Type: 
  Country: None (occurrence: None)
  Receive Date: 20120106
  Receipt Date: 20120103
  Transmission Date: 20120608
  Serious: Yes (Other)
  Sender: FDA-Public Use
  Company Number: PHEH2012US000513

PATIENT
  Sex: Female

DRUGS (8)
  1. RANEXA [Concomitant]
     Indication: ANGINA PECTORIS
     Dosage: 500 MG, QD
  2. ELMIRON [Concomitant]
     Dosage: 100 MG, (3 CAPS PER DAY)
  3. TEKTURNA [Suspect]
     Dosage: 150 MG, QD
  4. LIPITOR [Concomitant]
     Dosage: 10 MG, QD
  5. ASPIRIN [Concomitant]
     Dosage: 81 MG, QD
  6. METOPROLOL SUCCINATE [Concomitant]
     Dosage: 100 MG, QD
  7. NAPROXEN [Concomitant]
     Dosage: 500 MG, PRN
  8. DYAZIDE [Concomitant]
     Dosage: 1 DF(37.5/25MG) QD

REACTIONS (1)
  - CORONARY ARTERY DISEASE [None]
